FAERS Safety Report 11750577 (Version 1)
Quarter: 2015Q4

REPORT INFORMATION
  Report Type: Spontaneous
  Country: US (occurrence: US)
  Receive Date: 20151118
  Receipt Date: 20151118
  Transmission Date: 20160304
  Serious: No
  Sender: FDA-Public Use
  Company Number: US-MEDA-2015110022

PATIENT
  Age: 58 Year
  Sex: Male
  Weight: 113 kg

DRUGS (4)
  1. FLUTICASONE PROPIONATE. [Concomitant]
     Active Substance: FLUTICASONE PROPIONATE
     Indication: EAR INFECTION
     Route: 045
  2. DICLOFENAC [Concomitant]
     Active Substance: DICLOFENAC
     Indication: BACK PAIN
     Dates: start: 1979
  3. OPTIVAR [Suspect]
     Active Substance: AZELASTINE HYDROCHLORIDE
     Indication: GLAUCOMA
     Route: 047
  4. OPTIVAR [Suspect]
     Active Substance: AZELASTINE HYDROCHLORIDE
     Indication: GLAUCOMA
     Route: 047

REACTIONS (4)
  - Expired product administered [Recovered/Resolved]
  - No adverse event [Unknown]
  - Off label use [Unknown]
  - Therapeutic response unexpected [Unknown]

NARRATIVE: CASE EVENT DATE: 20151101
